FAERS Safety Report 11080652 (Version 2)
Quarter: 2015Q2

REPORT INFORMATION
  Report Type: Spontaneous
  Country: US (occurrence: US)
  Receive Date: 20150501
  Receipt Date: 20150529
  Transmission Date: 20150821
  Serious: Yes (Other)
  Sender: FDA-Public Use
  Company Number: US-AMGEN-USASP2015040153

PATIENT
  Sex: Male

DRUGS (2)
  1. COUMADIN [Suspect]
     Active Substance: WARFARIN SODIUM
     Indication: PRODUCT USED FOR UNKNOWN INDICATION
     Dosage: UNK
     Route: 065
  2. EPOGEN [Suspect]
     Active Substance: ERYTHROPOIETIN
     Indication: ANAEMIA
     Dosage: 17800 UNIT, ONCE A MONTH
     Route: 065

REACTIONS (4)
  - International normalised ratio abnormal [Recovered/Resolved]
  - Peritoneal dialysis [Recovered/Resolved]
  - Atrial fibrillation [Recovered/Resolved]
  - Haemoglobin abnormal [Recovered/Resolved]

NARRATIVE: CASE EVENT DATE: 201501
